FAERS Safety Report 20143199 (Version 2)
Quarter: 2022Q1

REPORT INFORMATION
  Report Type: Report from Study
  Country: DE (occurrence: DE)
  Receive Date: 20211203
  Receipt Date: 20220308
  Transmission Date: 20220423
  Serious: Yes (Other)
  Sender: FDA-Public Use
  Company Number: DE-002147023-NVSC2021DE271930

PATIENT
  Age: 41 Year
  Sex: Female
  Weight: 167 kg

DRUGS (32)
  1. ERENUMAB [Suspect]
     Active Substance: ERENUMAB
     Indication: Migraine
     Dosage: 70 MILLIGRAM
     Route: 065
     Dates: start: 20190724, end: 20190724
  2. ERENUMAB [Suspect]
     Active Substance: ERENUMAB
     Dosage: 70 MILLIGRAM
     Route: 065
     Dates: start: 20190807, end: 20190807
  3. ERENUMAB [Suspect]
     Active Substance: ERENUMAB
     Dosage: 140 MILLIGRAM
     Route: 065
     Dates: start: 20190910, end: 20190910
  4. ERENUMAB [Suspect]
     Active Substance: ERENUMAB
     Dosage: 140 MILLIGRAM
     Route: 065
     Dates: start: 20191008, end: 20191008
  5. ERENUMAB [Suspect]
     Active Substance: ERENUMAB
     Dosage: 140 MILLIGRAM
     Route: 065
     Dates: start: 20191107, end: 20191107
  6. ERENUMAB [Suspect]
     Active Substance: ERENUMAB
     Dosage: 140 MILLIGRAM
     Route: 065
     Dates: start: 20191205, end: 20191205
  7. ERENUMAB [Suspect]
     Active Substance: ERENUMAB
     Dosage: 140 MILLIGRAM
     Route: 065
     Dates: start: 20200102, end: 20200102
  8. ERENUMAB [Suspect]
     Active Substance: ERENUMAB
     Dosage: 140 MILLIGRAM
     Route: 065
     Dates: start: 20200130, end: 20200130
  9. ERENUMAB [Suspect]
     Active Substance: ERENUMAB
     Dosage: 140 MILLIGRAM
     Route: 065
     Dates: start: 20200227, end: 20200227
  10. ERENUMAB [Suspect]
     Active Substance: ERENUMAB
     Dosage: 140 MILLIGRAM
     Route: 065
     Dates: start: 20200326, end: 20200326
  11. ERENUMAB [Suspect]
     Active Substance: ERENUMAB
     Dosage: 140 MILLIGRAM
     Route: 065
     Dates: start: 20200423, end: 20200423
  12. ERENUMAB [Suspect]
     Active Substance: ERENUMAB
     Dosage: 140 MILLIGRAM
     Route: 065
     Dates: start: 20200521, end: 20200521
  13. ERENUMAB [Suspect]
     Active Substance: ERENUMAB
     Dosage: 140 MILLIGRAM
     Route: 065
     Dates: start: 20200618, end: 20200618
  14. ERENUMAB [Suspect]
     Active Substance: ERENUMAB
     Dosage: 140 MILLIGRAM
     Route: 065
     Dates: start: 20200723, end: 20200723
  15. ERENUMAB [Suspect]
     Active Substance: ERENUMAB
     Dosage: 140 MILLIGRAM
     Route: 065
     Dates: start: 20200820, end: 20200820
  16. ERENUMAB [Suspect]
     Active Substance: ERENUMAB
     Dosage: 140 MILLIGRAM
     Route: 065
     Dates: start: 20200917, end: 20200917
  17. ERENUMAB [Suspect]
     Active Substance: ERENUMAB
     Dosage: 140 MILLIGRAM
     Route: 065
     Dates: start: 20201015, end: 20201015
  18. ERENUMAB [Suspect]
     Active Substance: ERENUMAB
     Dosage: 140 MILLIGRAM
     Route: 065
     Dates: start: 20201112, end: 20201112
  19. ERENUMAB [Suspect]
     Active Substance: ERENUMAB
     Dosage: 140 MILLIGRAM
     Route: 065
     Dates: start: 20201210, end: 20201210
  20. ERENUMAB [Suspect]
     Active Substance: ERENUMAB
     Dosage: 140 MILLIGRAM
     Route: 065
     Dates: start: 20210108, end: 20210108
  21. ERENUMAB [Suspect]
     Active Substance: ERENUMAB
     Dosage: 140 MILLIGRAM
     Route: 065
     Dates: start: 20210205, end: 20210205
  22. ERENUMAB [Suspect]
     Active Substance: ERENUMAB
     Dosage: 140 MILLIGRAM
     Route: 065
     Dates: start: 20210305, end: 20210305
  23. ERENUMAB [Suspect]
     Active Substance: ERENUMAB
     Dosage: 140 MILLIGRAM
     Route: 065
     Dates: start: 20210402, end: 20210402
  24. ERENUMAB [Suspect]
     Active Substance: ERENUMAB
     Dosage: 140 MILLIGRAM
     Route: 065
     Dates: start: 20210430, end: 20210430
  25. ERENUMAB [Suspect]
     Active Substance: ERENUMAB
     Dosage: 140 MILLIGRAM
     Route: 065
     Dates: start: 20210521, end: 20210521
  26. ERENUMAB [Suspect]
     Active Substance: ERENUMAB
     Dosage: 140 MILLIGRAM
     Route: 065
     Dates: start: 20210620, end: 20210620
  27. ERENUMAB [Suspect]
     Active Substance: ERENUMAB
     Dosage: 140 MILLIGRAM
     Route: 065
     Dates: start: 20210721, end: 20210721
  28. ERENUMAB [Suspect]
     Active Substance: ERENUMAB
     Dosage: 140 MILLIGRAM
     Route: 065
     Dates: start: 20210820, end: 20210820
  29. ERENUMAB [Suspect]
     Active Substance: ERENUMAB
     Dosage: 140 MILLIGRAM
     Route: 065
     Dates: start: 20210921, end: 20210921
  30. PREDNISOLUT [PREDNISOLONE SODIUM SUCCINATE] [Concomitant]
     Indication: Multiple sclerosis
     Dosage: 1000 MG, QD
     Route: 048
     Dates: start: 20210823, end: 20210827
  31. SUMATRIPTAN [Concomitant]
     Active Substance: SUMATRIPTAN
     Indication: Migraine
     Dosage: 100 MILLIGRAM, PRN
     Route: 048
     Dates: start: 20190909
  32. IBUPROFEN [Concomitant]
     Active Substance: IBUPROFEN
     Indication: Migraine
     Dosage: 600 MG, PRN
     Route: 065
     Dates: start: 20190909

REACTIONS (3)
  - Multiple sclerosis relapse [Recovered/Resolved]
  - Fatigue [Unknown]
  - Therapy non-responder [Unknown]

NARRATIVE: CASE EVENT DATE: 20210823
